FAERS Safety Report 5067857-5 (Version None)
Quarter: 2006Q3

REPORT INFORMATION
  Report Type: 
  Country: None (occurrence: None)
  Receive Date: 20060731
  Receipt Date: 20060714
  Transmission Date: 20061208
  Serious: Yes (Death, Hospitalization, Other)
  Sender: FDA-Public Use
  Company Number: 163-20785-06020277

PATIENT
  Age: 79 Year
  Sex: Male

DRUGS (3)
  1. THALOMID [Suspect]
     Indication: WALDENSTROM'S MACROGLOBULINAEMIA
     Dosage: 2 IN 1 D, ORAL
     Route: 048
     Dates: start: 20051206, end: 20051220
  2. VELCADE [Suspect]
     Indication: WALDENSTROM'S MACROGLOBULINAEMIA
     Dates: end: 20060201
  3. DEXAMETHASONE TAB [Suspect]
     Indication: WALDENSTROM'S MACROGLOBULINAEMIA
     Dates: end: 20060201

REACTIONS (19)
  - ABDOMINAL PAIN [None]
  - ASTHENIA [None]
  - BLOOD IMMUNOGLOBULIN M INCREASED [None]
  - CONFUSIONAL STATE [None]
  - CORONARY ARTERY DISEASE [None]
  - DISEASE PROGRESSION [None]
  - EAR INFECTION [None]
  - FATIGUE [None]
  - FEBRILE NEUTROPENIA [None]
  - HYPERCHOLESTEROLAEMIA [None]
  - HYPERTENSION [None]
  - HYPERVISCOSITY SYNDROME [None]
  - MYELODYSPLASTIC SYNDROME [None]
  - PERFORMANCE STATUS DECREASED [None]
  - PLEURAL EFFUSION [None]
  - PNEUMONIA [None]
  - PSEUDOMONAS INFECTION [None]
  - THROMBOCYTOPENIA [None]
  - UNEVALUABLE EVENT [None]
